FAERS Safety Report 16336498 (Version 3)
Quarter: 2025Q2

REPORT INFORMATION
  Report Type: Spontaneous
  Country: US (occurrence: US)
  Receive Date: 20190521
  Receipt Date: 20250429
  Transmission Date: 20250717
  Serious: Yes (Other)
  Sender: AUROBINDO
  Company Number: US-MYLANLABS-2019M1048107

PATIENT
  Age: 65 Year
  Sex: Male

DRUGS (7)
  1. FLUOROURACIL [Suspect]
     Active Substance: FLUOROURACIL
     Indication: Pancreatic carcinoma metastatic
     Route: 065
  2. FLUOROURACIL [Suspect]
     Active Substance: FLUOROURACIL
     Route: 065
  3. ATROPINE [Suspect]
     Active Substance: ATROPINE
     Indication: Dysarthria
     Route: 065
  4. IRINOTECAN [Interacting]
     Active Substance: IRINOTECAN
     Indication: Pancreatic carcinoma metastatic
     Route: 041
  5. IRINOTECAN [Interacting]
     Active Substance: IRINOTECAN
     Route: 041
  6. LEUCOVORIN CALCIUM [Suspect]
     Active Substance: LEUCOVORIN CALCIUM
     Indication: Pancreatic carcinoma metastatic
     Route: 065
  7. OXALIPLATIN [Interacting]
     Active Substance: OXALIPLATIN
     Indication: Pancreatic carcinoma metastatic
     Route: 065

REACTIONS (9)
  - Neuropathy peripheral [Unknown]
  - Dysarthria [Unknown]
  - Drug interaction [Unknown]
  - Muscle spasms [Unknown]
  - Nausea [Unknown]
  - Diarrhoea [Unknown]
  - Fatigue [Unknown]
  - Abdominal distension [Unknown]
  - Asthenia [Unknown]
